FAERS Safety Report 13942190 (Version 1)
Quarter: 2017Q3

REPORT INFORMATION
  Report Type: Spontaneous
  Country: US (occurrence: US)
  Receive Date: 20170907
  Receipt Date: 20170907
  Transmission Date: 20171127
  Serious: Yes (Death, Life-Threatening, Hospitalization, Disabling)
  Sender: FDA-Public Use
  Company Number: None

PATIENT
  Sex: Female
  Weight: 40.05 kg

DRUGS (10)
  1. FLORENIF [Concomitant]
  2. FIBERCON [Concomitant]
     Active Substance: CALCIUM POLYCARBOPHIL
  3. SOLU-CORTEF [Concomitant]
     Active Substance: HYDROCORTISONE SODIUM SUCCINATE
  4. LINZESS [Concomitant]
     Active Substance: LINACLOTIDE
  5. CALCIUM GLUCONATE 10% INJECTION [Suspect]
     Active Substance: CALCIUM GLUCONATE
     Indication: BLOOD CALCIUM DECREASED
     Dosage: ?          QUANTITY:2 INJECTION(S);?
     Route: 030
  6. FULCONAZOLE [Concomitant]
  7. CALCIUM(TUMS) [Concomitant]
  8. OTC MORHINE [Concomitant]
  9. BENADRYL [Concomitant]
     Active Substance: DIPHENHYDRAMINE HYDROCHLORIDE
  10. PROBIOTIC [Concomitant]
     Active Substance: PROBIOTICS NOS

REACTIONS (1)
  - Infection [None]

NARRATIVE: CASE EVENT DATE: 20130418
